FAERS Safety Report 8388556-8 (Version None)
Quarter: 2012Q2

REPORT INFORMATION
  Report Type: 
  Country: None (occurrence: None)
  Receive Date: 20120525
  Receipt Date: 20120522
  Transmission Date: 20120825
  Serious: Yes (Other)
  Sender: FDA-Public Use
  Company Number: US-AMGEN-USASP2012032054

PATIENT
  Sex: Female

DRUGS (2)
  1. ENBREL [Suspect]
     Indication: RHEUMATOID ARTHRITIS
     Dosage: 50 MG, QWK
     Dates: start: 20060205
  2. TREXALL [Concomitant]
     Dosage: UNK
     Route: 058
     Dates: start: 20050101

REACTIONS (3)
  - MOOD ALTERED [None]
  - AGITATION [None]
  - ANGER [None]
